FAERS Safety Report 4499235-1 (Version None)
Quarter: 2004Q4

REPORT INFORMATION
  Report Type: 
  Country: None (occurrence: None)
  Receive Date: 20041111
  Receipt Date: 20040811
  Transmission Date: 20050328
  Serious: Yes (Disabling)
  Sender: FDA-Public Use
  Company Number: PHHO2004AR11482

PATIENT
  Age: 68 Year
  Sex: Female

DRUGS (3)
  1. ZELMAC / HTF 919A [Suspect]
     Indication: ABDOMINAL PAIN
     Dates: start: 20030501
  2. PAROXETINE [Concomitant]
  3. XANAX [Concomitant]

REACTIONS (5)
  - ABDOMINAL DISTENSION [None]
  - CHANGE OF BOWEL HABIT [None]
  - FALL [None]
  - LUMBAR VERTEBRAL FRACTURE [None]
  - NERVOUSNESS [None]
